FAERS Safety Report 9386842 (Version 8)
Quarter: 2013Q4

REPORT INFORMATION
  Report Type: Spontaneous
  Country: US (occurrence: US)
  Receive Date: 20130708
  Receipt Date: 20131111
  Transmission Date: 20140711
  Serious: No
  Sender: FDA-Public Use
  Company Number: US-009507513-1307USA002169

PATIENT
  Age: 53 Year
  Sex: Female

DRUGS (3)
  1. REBETOL [Suspect]
     Indication: HEPATITIS C
     Dosage: 3-2 TIMES A DAY
     Route: 048
     Dates: start: 20130625, end: 20131004
  2. PEGINTRON [Suspect]
     Indication: HEPATITIS C
     Dosage: REDIPEN, ONCE A WEEK
     Dates: start: 20130625, end: 20131004
  3. VICTRELIS [Suspect]
     Indication: HEPATITIS C
     Dosage: 4 PILLS EVERY 7-9 HOURS
     Route: 048
     Dates: start: 20130723, end: 20131004

REACTIONS (26)
  - Somnolence [Unknown]
  - Haematuria [Unknown]
  - Eye discharge [Unknown]
  - Pollakiuria [Unknown]
  - Dysuria [Unknown]
  - Pyrexia [Unknown]
  - Pruritus [Recovering/Resolving]
  - Decreased appetite [Unknown]
  - Dysgeusia [Unknown]
  - Dizziness [Unknown]
  - Asthenia [Unknown]
  - Alopecia [Unknown]
  - Pruritus generalised [Not Recovered/Not Resolved]
  - Burning sensation [Not Recovered/Not Resolved]
  - Decreased appetite [Unknown]
  - Fatigue [Unknown]
  - Depression [Unknown]
  - Chills [Unknown]
  - Pyrexia [Unknown]
  - Pruritus [Not Recovered/Not Resolved]
  - Formication [Not Recovered/Not Resolved]
  - Malaise [Unknown]
  - Confusional state [Unknown]
  - Eyelids pruritus [Unknown]
  - Lacrimation increased [Unknown]
  - Pain [Not Recovered/Not Resolved]
